FAERS Safety Report 6000184-8 (Version None)
Quarter: 2008Q4

REPORT INFORMATION
  Report Type: 
  Country: None (occurrence: None)
  Receive Date: 20081215
  Receipt Date: 20081209
  Transmission Date: 20090506
  Serious: Yes (Other)
  Sender: FDA-Public Use
  Company Number: FR-ASTRAZENECA-2008CG01822

PATIENT
  Age: 90 Year
  Sex: Female

DRUGS (3)
  1. ARIMIDEX [Suspect]
     Indication: BREAST CANCER FEMALE
     Route: 048
     Dates: start: 20080301
  2. MOVICOL [Concomitant]
  3. PERISTALTINE [Concomitant]

REACTIONS (1)
  - MACULAR DEGENERATION [None]
